FAERS Safety Report 8534901 (Version 3)
Quarter: 2013Q2

REPORT INFORMATION
  Report Type: Spontaneous
  Country: US (occurrence: None)
  Receive Date: 20120327
  Receipt Date: 20120709
  Transmission Date: 20140414
  Serious: Yes (Other)
  Sender: FDA-Public Use
  Company Number: PHEH2009US16261

PATIENT
  Age: 56 Year
  Sex: Male
  Weight: 77.1 kg

DRUGS (1)
  1. GLEEVEC (IMATINIB) [Suspect]
     Indication: GASTRIC CANCER
     Dosage: 400 MG, QD, ORAL
     Route: 048
     Dates: start: 20090723

REACTIONS (21)
  - JAUNDICE [None]
  - HAEMATOCHEZIA [None]
  - PARAESTHESIA [None]
  - POLLAKIURIA [None]
  - RASH PRURITIC [None]
  - VOMITING [None]
  - DIARRHOEA [None]
  - SWELLING [None]
  - ERYTHEMA [None]
  - MYALGIA [None]
  - FATIGUE [None]
  - BONE PAIN [None]
  - PAIN IN EXTREMITY [None]
  - PYREXIA [None]
  - FLUID RETENTION [None]
  - RASH [None]
  - WEIGHT INCREASED [None]
  - MUSCLE SPASMS [None]
  - Eye disorder [None]
  - Nausea [None]
  - Dyspnoea [None]
